FAERS Safety Report 6710685-2 (Version None)
Quarter: 2010Q2

REPORT INFORMATION
  Report Type: 
  Country: None (occurrence: None)
  Receive Date: 20100504
  Receipt Date: 20100504
  Transmission Date: 20101027
  Serious: Yes (Other)
  Sender: FDA-Public Use
  Company Number: None

PATIENT
  Sex: Female
  Weight: 68.0396 kg

DRUGS (2)
  1. MOTRIN IB [Suspect]
     Indication: BREAST DISCOMFORT
     Dosage: 48 OUT OF 125 AS NEEDED PO
     Route: 048
     Dates: start: 20091101, end: 20100101
  2. MOTRIN IB [Suspect]
     Indication: MENSTRUAL DISCOMFORT
     Dosage: 48 OUT OF 125 AS NEEDED PO
     Route: 048
     Dates: start: 20091101, end: 20100101

REACTIONS (2)
  - MALAISE [None]
  - PRODUCT QUALITY ISSUE [None]
